FAERS Safety Report 6004690-1 (Version None)
Quarter: 2008Q4

REPORT INFORMATION
  Report Type: 
  Country: None (occurrence: None)
  Receive Date: 20081216
  Receipt Date: 20081204
  Transmission Date: 20090506
  Serious: Yes (Life-Threatening, Hospitalization, Other)
  Sender: FDA-Public Use
  Company Number: CA-PFIZER INC-2008151782

PATIENT

DRUGS (3)
  1. LYRICA [Suspect]
     Indication: FIBROMYALGIA
     Dosage: 25 MG, AS NEEDED
     Route: 048
     Dates: start: 20080714
  2. ANTIHYPERTENSIVES [Concomitant]
     Dosage: UNK
  3. TYLENOL (CAPLET) [Concomitant]
     Indication: ARTHRITIS
     Dosage: UNK

REACTIONS (1)
  - DELAYED RECOVERY FROM ANAESTHESIA [None]
